FAERS Safety Report 5718765-5 (Version None)
Quarter: 2008Q2

REPORT INFORMATION
  Report Type: 
  Country: None (occurrence: None)
  Receive Date: 20080425
  Receipt Date: 20080411
  Transmission Date: 20081010
  Serious: Yes (Death, Life-Threatening, Hospitalization)
  Sender: FDA-Public Use
  Company Number: JP-GENENTECH-258657

PATIENT
  Sex: Male
  Weight: 59.002 kg

DRUGS (7)
  1. AVASTIN [Suspect]
     Indication: RECTAL CANCER
     Dosage: 5 MG/KG, Q2W
     Route: 041
     Dates: start: 20080212, end: 20080311
  2. OXALIPLATIN [Suspect]
     Indication: RECTAL CANCER
     Dosage: UNK, UNK
     Route: 041
     Dates: end: 20080311
  3. ISOVORIN [Suspect]
     Indication: RECTAL CANCER
     Dosage: UNK, UNK
     Route: 041
     Dates: end: 20080311
  4. FLUOROURACIL [Suspect]
     Indication: RECTAL CANCER
     Dosage: UNK, UNK
     Route: 042
     Dates: end: 20080311
  5. HEPARIN [Concomitant]
     Indication: DRUG USE FOR UNKNOWN INDICATION
     Dosage: 640 UNIT, QD
  6. NEUART [Concomitant]
     Indication: DRUG USE FOR UNKNOWN INDICATION
     Dosage: 1500 UNIT, UNK
  7. VANCOMYCIN HYDROCHLORIDE [Concomitant]
     Indication: DRUG USE FOR UNKNOWN INDICATION
     Dosage: 2 G, UNK

REACTIONS (2)
  - CEREBRAL INFARCTION [None]
  - DISSEMINATED INTRAVASCULAR COAGULATION [None]
